FAERS Safety Report 5509543-0 (Version None)
Quarter: 2007Q4

REPORT INFORMATION
  Report Type: 
  Country: None (occurrence: None)
  Receive Date: 20071029
  Receipt Date: 20070719
  Transmission Date: 20080405
  Serious: No
  Sender: FDA-Public Use
  Company Number: 012963

PATIENT
  Age: 38 Year
  Sex: Male

DRUGS (5)
  1. PRIALT [Suspect]
     Indication: DRUG USE FOR UNKNOWN INDICATION
     Dosage: UG, ONCE/HOUR, INTRATHECAL
     Route: 037
  2. FENTANYL [Concomitant]
  3. BACLOFEN [Concomitant]
  4. MARCAINE /00330101/ (BUPIVACAINE) [Concomitant]
  5. MORPHINE [Concomitant]

REACTIONS (2)
  - DEVICE FAILURE [None]
  - PAIN [None]
